FAERS Safety Report 4393762-3 (Version None)
Quarter: 2004Q2

REPORT INFORMATION
  Report Type: 
  Country: None (occurrence: None)
  Receive Date: 20040621
  Receipt Date: 20000413
  Transmission Date: 20050107
  Serious: Yes (Hospitalization)
  Sender: FDA-Public Use
  Company Number: KII-2000-0007871

PATIENT
  Age: 33 Year

DRUGS (1)
  1. OXYCONTIN [Suspect]
     Dosage: 80 MG, Q12H

REACTIONS (2)
  - NAUSEA [None]
  - VOMITING [None]
